FAERS Safety Report 23676656 (Version 1)
Quarter: 2024Q1

REPORT INFORMATION
  Report Type: Spontaneous
  Country: AT (occurrence: AT)
  Receive Date: 20240327
  Receipt Date: 20240327
  Transmission Date: 20240409
  Serious: Yes (Other)
  Sender: FDA-Public Use
  Company Number: AT-TAKEDA-2024TUS025852

PATIENT
  Age: 80 Year
  Sex: Female

DRUGS (3)
  1. ALUNBRIG [Suspect]
     Active Substance: BRIGATINIB
     Indication: Enterocolitis
     Dosage: 90 MILLIGRAM, 1/WEEK
     Route: 065
     Dates: start: 202309
  2. ALUNBRIG [Suspect]
     Active Substance: BRIGATINIB
     Dosage: 180 MILLIGRAM, 1/WEEK
     Route: 065
  3. ALUNBRIG [Suspect]
     Active Substance: BRIGATINIB
     Dosage: 120 MILLIGRAM
     Route: 065

REACTIONS (4)
  - Renal impairment [Recovering/Resolving]
  - Amylase increased [Unknown]
  - Lipase increased [Unknown]
  - Off label use [Unknown]
